FAERS Safety Report 8233467-1 (Version None)
Quarter: 2012Q1

REPORT INFORMATION
  Report Type: 
  Country: None (occurrence: None)
  Receive Date: 20120326
  Receipt Date: 20120312
  Transmission Date: 20120608
  Serious: Yes (Death)
  Sender: FDA-Public Use
  Company Number: CA-JNJFOC-20120306865

PATIENT
  Age: 61 Year
  Sex: Female

DRUGS (2)
  1. FENTANYL [Suspect]
     Indication: OSTEOARTHRITIS
     Route: 065
  2. FENTANYL [Suspect]
     Indication: FIBROMYALGIA
     Route: 065

REACTIONS (2)
  - TOXICITY TO VARIOUS AGENTS [None]
  - ACCIDENTAL OVERDOSE [None]
